FAERS Safety Report 6359381-4 (Version None)
Quarter: 2009Q3

REPORT INFORMATION
  Report Type: 
  Country: None (occurrence: None)
  Receive Date: 20090914
  Receipt Date: 20090831
  Transmission Date: 20100115
  Serious: Yes (Other)
  Sender: FDA-Public Use
  Company Number: 2009SP023207

PATIENT
  Age: 26 Year
  Sex: Female

DRUGS (2)
  1. NOVIAL (DESOGESTREL/ETHINYLESTRADIOL) (DESOGESTREL/ETHINYLESTRADIOL) [Suspect]
     Indication: DRUG USE FOR UNKNOWN INDICATION
     Dates: start: 20070101
  2. GINSENG W/ VITAMINS [Concomitant]

REACTIONS (2)
  - FACIAL PALSY [None]
  - PARAESTHESIA [None]
